FAERS Safety Report 7065068-5 (Version None)
Quarter: 2010Q4

REPORT INFORMATION
  Report Type: 
  Country: None (occurrence: None)
  Receive Date: 20101027
  Receipt Date: 19900226
  Transmission Date: 20110411
  Serious: Yes (Death)
  Sender: FDA-Public Use
  Company Number: US-ROCHE-900200239001

PATIENT
  Age: 64 Year
  Sex: Female

DRUGS (3)
  1. VALIUM [Suspect]
     Indication: ANXIETY DISORDER
     Route: 048
     Dates: start: 19710315, end: 19900216
  2. LOPRESSOR [Concomitant]
     Route: 048
     Dates: end: 19900212
  3. CALAN [Concomitant]
     Route: 065

REACTIONS (2)
  - CORONARY ARTERY DISEASE [None]
  - WITHDRAWAL SYNDROME [None]
